FAERS Safety Report 14330262 (Version 6)
Quarter: 2018Q2

REPORT INFORMATION
  Report Type: Report from Study
  Country: None (occurrence: BR)
  Receive Date: 20171227
  Receipt Date: 20180416
  Transmission Date: 20180711
  Serious: Yes (Hospitalization, Other)
  Sender: FDA-Public Use
  Company Number: BR-ABBVIE-17P-020-2205233-00

PATIENT

DRUGS (7)
  1. VENETOCLAX. [Suspect]
     Active Substance: VENETOCLAX
     Route: 048
     Dates: start: 20171027
  2. VENETOCLAX. [Suspect]
     Active Substance: VENETOCLAX
     Route: 048
     Dates: start: 20180328
  3. VENETOCLAX. [Suspect]
     Active Substance: VENETOCLAX
     Route: 048
     Dates: start: 20180321
  4. VENETOCLAX. [Suspect]
     Active Substance: VENETOCLAX
     Route: 048
  5. VENETOCLAX. [Suspect]
     Active Substance: VENETOCLAX
     Indication: PLASMA CELL MYELOMA
     Route: 048
     Dates: start: 20171003, end: 20171025
  6. VENETOCLAX. [Suspect]
     Active Substance: VENETOCLAX
     Route: 048
     Dates: start: 20171117, end: 20180211
  7. VENETOCLAX. [Suspect]
     Active Substance: VENETOCLAX
     Route: 048
     Dates: start: 20180321

REACTIONS (9)
  - Hepatitis [Recovering/Resolving]
  - Hospitalisation [Unknown]
  - Pericardial effusion [Unknown]
  - Atrial enlargement [Unknown]
  - Gastrointestinal toxicity [Unknown]
  - Vomiting [Unknown]
  - Diarrhoea [Unknown]
  - Myocarditis [Recovering/Resolving]
  - Pleural effusion [Unknown]

NARRATIVE: CASE EVENT DATE: 20180211
